FAERS Safety Report 13664178 (Version 1)
Quarter: 2017Q2

REPORT INFORMATION
  Report Type: Spontaneous
  Country: US (occurrence: US)
  Receive Date: 20170619
  Receipt Date: 20170619
  Transmission Date: 20170830
  Serious: Yes (Other)
  Sender: FDA-Public Use
  Company Number: US-PFIZER INC-2017259282

PATIENT
  Age: 7 Day
  Sex: Female
  Weight: 2 kg

DRUGS (7)
  1. ALBUMIN [Concomitant]
     Active Substance: ALBUMIN HUMAN
     Dosage: 36 ML, UNK
  2. DEXTROSE SALINE [Concomitant]
     Active Substance: DEXTROSE\SODIUM CHLORIDE
     Dosage: 20 ML D10 1/4 NS
  3. ROCURONIUM BROMIDE. [Suspect]
     Active Substance: ROCURONIUM BROMIDE
     Indication: ANAESTHESIA
     Dosage: 20 MG, UNK (10 MG/KG, IN 4 DIVIDED DOSES)
  4. FENTANYL. [Concomitant]
     Active Substance: FENTANYL
     Indication: ANAESTHESIA
     Dosage: 55 UG, UNK (27.5 UG/KG)
  5. SEVOFLURANE. [Concomitant]
     Active Substance: SEVOFLURANE
     Indication: ANAESTHESIA
     Dosage: UNK
  6. GLYCOPYRROLATE /00196201/ [Concomitant]
     Active Substance: GLYCOPYRRONIUM
     Dosage: 0.1 MG, UNK
  7. NORMAL SALINE [Concomitant]
     Active Substance: SODIUM CHLORIDE
     Dosage: 180 ML, UNK

REACTIONS (4)
  - Toxicity to various agents [Recovered/Resolved]
  - Mydriasis [Recovered/Resolved]
  - Overdose [Unknown]
  - Pupil fixed [Recovered/Resolved]
